FAERS Safety Report 15287389 (Version 1)
Quarter: 2018Q3

REPORT INFORMATION
  Report Type: Spontaneous
  Country: DE (occurrence: DE)
  Receive Date: 20180817
  Receipt Date: 20180817
  Transmission Date: 20181010
  Serious: Yes (Other)
  Sender: FDA-Public Use
  Company Number: DE-SUN PHARMACEUTICAL INDUSTRIES LTD-2018RR-181540

PATIENT
  Age: 68 Year
  Sex: Female

DRUGS (12)
  1. CALCIUM FOLINAT [Suspect]
     Active Substance: LEUCOVORIN CALCIUM
     Dosage: 2 CYCLES
     Route: 065
  2. 5?FLUOROURACIL [Suspect]
     Active Substance: FLUOROURACIL
     Indication: RECTAL CANCER METASTATIC
     Dosage: 4 CYCLES, FOLFIRI REGIMEN
     Route: 065
  3. IRINOTECAN [Suspect]
     Active Substance: IRINOTECAN
     Dosage: 1 CYCLE
     Route: 065
  4. CALCIUM FOLINAT [Suspect]
     Active Substance: LEUCOVORIN CALCIUM
     Dosage: 2 CYCLES, FOLFOX REGIMEN
     Route: 065
  5. CALCIUM FOLINAT [Suspect]
     Active Substance: LEUCOVORIN CALCIUM
     Indication: RECTAL CANCER METASTATIC
     Dosage: 4 CYCLES, FOLFIRI REGIMEN
     Route: 065
  6. IRINOTECAN [Suspect]
     Active Substance: IRINOTECAN
     Indication: RECTAL CANCER METASTATIC
     Dosage: 4 CYCLES, FOLFIRI REGIMEN
     Route: 065
  7. OXALIPLATIN. [Suspect]
     Active Substance: OXALIPLATIN
     Indication: RECTAL CANCER METASTATIC
     Dosage: 2 CYCLES, FOLFOX REGIMEN
     Route: 065
  8. 5?FLUOROURACIL [Suspect]
     Active Substance: FLUOROURACIL
     Dosage: 2 CYCLES
     Route: 065
  9. CETUXIMAB. [Suspect]
     Active Substance: CETUXIMAB
     Indication: RECTAL CANCER METASTATIC
     Dosage: 1 CYCLE
     Route: 065
  10. BEVACIZUMAB. [Suspect]
     Active Substance: BEVACIZUMAB
     Indication: RECTAL CANCER METASTATIC
     Dosage: 2 CYCLES
     Route: 065
  11. IRINOTECAN [Suspect]
     Active Substance: IRINOTECAN
     Dosage: 2 CYCLES
     Route: 065
  12. 5?FLUOROURACIL [Suspect]
     Active Substance: FLUOROURACIL
     Dosage: 2 CYCLES, FOLFOX REGIMEN
     Route: 065

REACTIONS (5)
  - Drug effect incomplete [Unknown]
  - Metastases to bone [Unknown]
  - Hepatic enzyme increased [Unknown]
  - Adverse drug reaction [Unknown]
  - Hepatitis C [Unknown]
